FAERS Safety Report 17716764 (Version 2)
Quarter: 2020Q3

REPORT INFORMATION
  Report Type: Spontaneous
  Country: IT (occurrence: IT)
  Receive Date: 20200428
  Receipt Date: 20200804
  Transmission Date: 20201102
  Serious: Yes (Other)
  Sender: FDA-Public Use
  Company Number: IT-SA-2020SA101459

PATIENT

DRUGS (1)
  1. ALEMTUZUMAB [Suspect]
     Active Substance: ALEMTUZUMAB
     Indication: RELAPSING-REMITTING MULTIPLE SCLEROSIS
     Dosage: UNK UNK, QCY

REACTIONS (6)
  - Encephalitis autoimmune [Recovering/Resolving]
  - Partial seizures [Recovering/Resolving]
  - Automatism [Recovering/Resolving]
  - Status epilepticus [Recovering/Resolving]
  - Behaviour disorder [Recovering/Resolving]
  - Aphasia [Recovering/Resolving]
